FAERS Safety Report 23292487 (Version 2)
Quarter: 2023Q4

REPORT INFORMATION
  Report Type: Spontaneous
  Country: FR (occurrence: FR)
  Receive Date: 20231213
  Receipt Date: 20231214
  Transmission Date: 20240109
  Serious: Yes (Other)
  Sender: FDA-Public Use
  Company Number: FR-SA-2023SA384467

PATIENT
  Age: 34 Year
  Sex: Female

DRUGS (3)
  1. DUPILUMAB [Suspect]
     Active Substance: DUPILUMAB
     Indication: Erythrodermic atopic dermatitis
     Dosage: UNK
  2. CORTICOSTEROID NOS [Concomitant]
     Active Substance: CORTICOSTEROID NOS
     Indication: Dermatitis atopic
     Dosage: UNK
     Route: 061
  3. CORTICOSTEROID NOS [Concomitant]
     Active Substance: CORTICOSTEROID NOS
     Indication: Erythrodermic atopic dermatitis

REACTIONS (6)
  - Dilated cardiomyopathy [Recovering/Resolving]
  - General physical health deterioration [Recovering/Resolving]
  - Fatigue [Recovering/Resolving]
  - Dyspnoea [Recovering/Resolving]
  - Orthopnoea [Recovered/Resolved]
  - Eosinophilia [Recovering/Resolving]
